FAERS Safety Report 24893259 (Version 1)
Quarter: 2025Q1

REPORT INFORMATION
  Report Type: Spontaneous
  Country: DE (occurrence: DE)
  Receive Date: 20250128
  Receipt Date: 20250128
  Transmission Date: 20250409
  Serious: Yes (Other)
  Sender: JOHNSON AND JOHNSON
  Company Number: None

PATIENT
  Age: 10 Year
  Sex: Female
  Weight: 36 kg

DRUGS (13)
  1. REMICADE [Suspect]
     Active Substance: INFLIXIMAB
     Indication: Polychondritis
     Route: 041
  2. PREDNISONE [Suspect]
     Active Substance: PREDNISONE
     Indication: Polychondritis
     Route: 048
  3. PREDNISONE [Suspect]
     Active Substance: PREDNISONE
     Route: 048
  4. PREDNISONE [Suspect]
     Active Substance: PREDNISONE
     Route: 048
  5. PREDNISONE [Suspect]
     Active Substance: PREDNISONE
     Route: 048
  6. PREDNISONE [Suspect]
     Active Substance: PREDNISONE
     Route: 048
  7. PREDNISONE [Suspect]
     Active Substance: PREDNISONE
     Route: 048
  8. ANAKINRA [Suspect]
     Active Substance: ANAKINRA
     Indication: Polychondritis
     Dosage: DAILY DOSE: 100 MG MILLIGRAM(S) EVERY DAY
     Route: 058
  9. ETANERCEPT [Suspect]
     Active Substance: ETANERCEPT
     Indication: Polychondritis
     Dosage: DAILY DOSE: 25 MG MILLIGRAM(S) EVERY WEEK
     Route: 058
  10. HUMAN IMMUNOGLOBULIN G [Suspect]
     Active Substance: HUMAN IMMUNOGLOBULIN G
     Indication: Polychondritis
     Route: 042
  11. METHOTREXATE [Suspect]
     Active Substance: METHOTREXATE
     Indication: Polychondritis
     Dosage: DAILY DOSE: 0.5 MG/KG MILLIGRAM(S)/KILOGRAM EVERY WEEK
     Route: 058
  12. METHYLPREDNISOLONE [Suspect]
     Active Substance: METHYLPREDNISOLONE
     Indication: Polychondritis
     Dosage: DAILY DOSE: 1 G GRAM(S) EVERY DAY
     Route: 042
  13. METHYLPREDNISOLONE [Suspect]
     Active Substance: METHYLPREDNISOLONE
     Dosage: DAILY DOSE: 1 G GRAM(S) EVERY DAY
     Route: 042

REACTIONS (11)
  - Pseudo Cushing^s syndrome [Recovered/Resolved]
  - Injection site pain [Unknown]
  - Swelling [Recovered/Resolved]
  - Back pain [Recovered/Resolved]
  - Weight increased [Recovered/Resolved]
  - Epidural lipomatosis [Recovered/Resolved]
  - Back pain [Recovered/Resolved]
  - Weight increased [Unknown]
  - Epidural lipomatosis [Recovered/Resolved]
  - Body mass index increased [Recovered/Resolved]
  - Cushing^s syndrome [Recovered/Resolved]

NARRATIVE: CASE EVENT DATE: 20100101
